FAERS Safety Report 6811980-9 (Version None)
Quarter: 2010Q3

REPORT INFORMATION
  Report Type: 
  Country: None (occurrence: None)
  Receive Date: 20100701
  Receipt Date: 20100616
  Transmission Date: 20110219
  Serious: Yes (Hospitalization)
  Sender: FDA-Public Use
  Company Number: GB-RANBAXY-2010RR-35209

PATIENT
  Age: 17 Year
  Sex: Male
  Weight: 75 kg

DRUGS (3)
  1. ISOTRETINOIN [Suspect]
     Indication: ACNE
     Dosage: 40 MG, UNK
     Route: 048
     Dates: start: 20100311, end: 20100518
  2. ISOTRETINOIN [Suspect]
     Dosage: 75 MG, QD
     Route: 048
     Dates: start: 20100518, end: 20100531
  3. ANADIN [Concomitant]
     Dosage: UNK
     Dates: start: 20100531

REACTIONS (4)
  - DEPRESSED MOOD [None]
  - DRY EYE [None]
  - DRY MOUTH [None]
  - SUICIDE ATTEMPT [None]
